FAERS Safety Report 13678606 (Version 1)
Quarter: 2017Q2

REPORT INFORMATION
  Report Type: Spontaneous
  Country: FR (occurrence: FR)
  Receive Date: 20170622
  Receipt Date: 20170622
  Transmission Date: 20170830
  Serious: Yes (Death, Life-Threatening, Hospitalization, Other)
  Sender: FDA-Public Use
  Company Number: FR-BRISTOL-MYERS SQUIBB COMPANY-BMS-2017-051910

PATIENT
  Age: 85 Year
  Sex: Female

DRUGS (1)
  1. ELIQUIS [Suspect]
     Active Substance: APIXABAN
     Indication: CEREBROVASCULAR ACCIDENT PROPHYLAXIS
     Dosage: 5 MG, BID
     Route: 048
     Dates: start: 20160520, end: 20170507

REACTIONS (11)
  - Stress cardiomyopathy [Unknown]
  - Thrombectomy [Unknown]
  - Pulmonary oedema [Unknown]
  - Drug ineffective [Fatal]
  - Cholangitis [Unknown]
  - Pancreatitis [Unknown]
  - Intestinal ischaemia [Fatal]
  - Cardiogenic shock [Unknown]
  - Intestinal resection [Unknown]
  - Transient ischaemic attack [Recovered/Resolved]
  - Mesenteric artery thrombosis [Unknown]

NARRATIVE: CASE EVENT DATE: 201610
